FAERS Safety Report 23477630 (Version 1)
Quarter: 2024Q1

REPORT INFORMATION
  Report Type: Report from Study
  Country: CA (occurrence: CA)
  Receive Date: 20240204
  Receipt Date: 20240204
  Transmission Date: 20240410
  Serious: No
  Sender: FDA-Public Use
  Company Number: CA-IPSEN Group, Research and Development-2023-11713

PATIENT
  Sex: Male

DRUGS (21)
  1. CABOMETYX [Suspect]
     Active Substance: CABOZANTINIB S-MALATE
     Indication: Renal cell carcinoma
     Dosage: 60 MG, QD
     Route: 048
     Dates: start: 20230328
  2. CABOMETYX [Suspect]
     Active Substance: CABOZANTINIB S-MALATE
     Dosage: 40 MG, QD
     Route: 048
     Dates: start: 20230711
  3. LANREOTIDE ACETATE [Suspect]
     Active Substance: LANREOTIDE ACETATE
     Indication: Renal cell carcinoma
     Dosage: 60 MG, EVERY MONTH
     Route: 058
     Dates: start: 20230328
  4. ACETAMINOPHEN [Concomitant]
     Active Substance: ACETAMINOPHEN
     Dosage: 500-1000MG X2
  5. BACLOFEN [Concomitant]
     Active Substance: BACLOFEN
     Dosage: 20MG X4
  6. BISACODYL [Concomitant]
     Active Substance: BISACODYL
     Dosage: 10 MG EVERY OTHER DAY
  7. CALCIUM CARBONATE [Concomitant]
     Active Substance: CALCIUM CARBONATE
     Dosage: 1250 MG, QD
  8. DICLOFENAC DIETHYLAMINE [Concomitant]
     Active Substance: DICLOFENAC DIETHYLAMINE
     Dosage: 2.32 PERCENT X3
  9. ENOXAPARIN [Concomitant]
     Active Substance: ENOXAPARIN
     Dosage: 40MG/0.4ML INJ NIGHTLY
  10. FLUTICASONE FUROATE [Concomitant]
     Active Substance: FLUTICASONE FUROATE
     Dosage: 200 UG
  11. VILANTEROL [Concomitant]
     Active Substance: VILANTEROL
     Dosage: 25MCG PER INHALATION
  12. HYDROCORTISONE [Concomitant]
     Active Substance: HYDROCORTISONE
     Dosage: 10 MG
  13. ZINC SULFATE [Concomitant]
     Active Substance: ZINC SULFATE
     Dosage: 10 MG, BID
  14. HYDROMORPHONE [Concomitant]
     Active Substance: HYDROMORPHONE
     Dosage: 1 MG, EVERY 4 HOURS PRN
  15. MELATONIN [Concomitant]
     Active Substance: MELATONIN
     Dosage: 3MG NIGHTLY PRN
     Route: 060
  16. METOCLOPRAMIDE [Concomitant]
     Active Substance: METOCLOPRAMIDE
     Dosage: 5MG X3 PRN
  17. PANTOPRAZOLE SODIUM [Concomitant]
     Active Substance: PANTOPRAZOLE SODIUM
     Dosage: 40MG X2 DAILY
  18. POLYETHYLENE GLYCOL [Concomitant]
     Active Substance: POLYETHYLENE GLYCOL
     Dosage: 3350 EVERY OTHER DAY
  19. PREGABALIN [Concomitant]
     Active Substance: PREGABALIN
     Dosage: 75 MG, BID
  20. ALBUTEROL [Concomitant]
     Active Substance: ALBUTEROL
     Dosage: 100MCG, X2 DAILY, AND EVERY 6 HOURS PRN
  21. VITAMIN D3 [Concomitant]
     Active Substance: CHOLECALCIFEROL
     Dosage: 2000 [IU]/G, QD

REACTIONS (3)
  - Wound infection [Unknown]
  - Stomatitis [Unknown]
  - Off label use [Unknown]
